FAERS Safety Report 23991639 (Version 3)
Quarter: 2025Q3

REPORT INFORMATION
  Report Type: Spontaneous
  Country: US (occurrence: US)
  Receive Date: 20240619
  Receipt Date: 20250828
  Transmission Date: 20251021
  Serious: No
  Sender: ELI LILLY AND COMPANY
  Company Number: US-ELI_LILLY_AND_COMPANY-US202406012955

PATIENT
  Age: 50 Year
  Sex: Female

DRUGS (3)
  1. VERZENIO [Suspect]
     Active Substance: ABEMACICLIB
     Indication: Breast cancer female
     Dosage: 150 MG, BID
     Route: 048
     Dates: start: 20240614
  2. VERZENIO [Suspect]
     Active Substance: ABEMACICLIB
     Dosage: 100 MG, BID
     Route: 048
  3. VERZENIO [Suspect]
     Active Substance: ABEMACICLIB
     Dosage: 50 MG, BID
     Route: 048
     Dates: start: 20240812

REACTIONS (8)
  - Dyspepsia [Unknown]
  - Product dose omission issue [Unknown]
  - Illness [Unknown]
  - Dizziness [Not Recovered/Not Resolved]
  - Headache [Unknown]
  - Cough [Unknown]
  - Diarrhoea [Unknown]
  - Nausea [Not Recovered/Not Resolved]

NARRATIVE: CASE EVENT DATE: 20240601
